FAERS Safety Report 21043338 (Version 1)
Quarter: 2022Q3

REPORT INFORMATION
  Report Type: Spontaneous
  Country: US (occurrence: US)
  Receive Date: 20220705
  Receipt Date: 20220705
  Transmission Date: 20221027
  Serious: No
  Sender: FDA-Public Use
  Company Number: US-BRISTOL-MYERS SQUIBB COMPANY-2022-067980

PATIENT
  Age: 75 Year
  Sex: Male
  Weight: 67.59 kg

DRUGS (1)
  1. POMALYST [Suspect]
     Active Substance: POMALIDOMIDE
     Indication: Plasma cell myeloma
     Dosage: 2 MILLIGRAM DAILY FOR 21 DAYS
     Route: 048

REACTIONS (3)
  - Dizziness [Unknown]
  - Tremor [Unknown]
  - Tremor [Unknown]
